FAERS Safety Report 13830291 (Version 2)
Quarter: 2017Q4

REPORT INFORMATION
  Report Type: Spontaneous
  Country: US (occurrence: US)
  Receive Date: 20170803
  Receipt Date: 20171102
  Transmission Date: 20180320
  Serious: No
  Sender: FDA-Public Use
  Company Number: US-SA-2017SA123113

PATIENT
  Age: 57 Year
  Sex: Male
  Weight: 108 kg

DRUGS (7)
  1. PRALUENT [Suspect]
     Active Substance: ALIROCUMAB
     Indication: HYPERLIPIDAEMIA
     Route: 058
     Dates: start: 20170618, end: 20170618
  2. VITAMIN C [Concomitant]
     Active Substance: ASCORBIC ACID
     Dosage: FREQUENCY: FIVE TIMES WEEKLY
     Route: 065
  3. GLUCOSAMINE [Concomitant]
     Active Substance: GLUCOSAMINE
     Route: 048
  4. COENZYME Q10 [Concomitant]
     Active Substance: UBIDECARENONE
     Route: 048
  5. ALIROCUMAB PREFILLED PEN [Suspect]
     Active Substance: ALIROCUMAB
     Indication: HYPERLIPIDAEMIA
     Dates: start: 20170620, end: 20170620
  6. RAMIPRIL. [Concomitant]
     Active Substance: RAMIPRIL
     Route: 048
  7. ASPIRIN. [Concomitant]
     Active Substance: ASPIRIN
     Route: 048

REACTIONS (9)
  - Influenza like illness [Recovered/Resolved]
  - Nasal congestion [Recovered/Resolved]
  - Oedema peripheral [Not Recovered/Not Resolved]
  - Gout [Not Recovered/Not Resolved]
  - Chills [Recovered/Resolved]
  - Bronchitis [Unknown]
  - Myalgia [Recovered/Resolved]
  - Erythema [Not Recovered/Not Resolved]
  - Paraesthesia [Not Recovered/Not Resolved]

NARRATIVE: CASE EVENT DATE: 201706
